FAERS Safety Report 23087156 (Version 1)
Quarter: 2023Q4

REPORT INFORMATION
  Report Type: Spontaneous
  Country: US (occurrence: US)
  Receive Date: 20231020
  Receipt Date: 20231020
  Transmission Date: 20240110
  Serious: Yes (Hospitalization, Other)
  Sender: FDA-Public Use
  Company Number: US-SPECGX-T202302019

PATIENT
  Age: 45 Year
  Sex: Male

DRUGS (3)
  1. FENTANYL CITRATE [Suspect]
     Active Substance: FENTANYL CITRATE
     Indication: Product used for unknown indication
     Dosage: UNK
     Route: 042
  2. HEROIN [Suspect]
     Active Substance: DIAMORPHINE
     Indication: Product used for unknown indication
     Dosage: UNK
     Route: 042
  3. METHAMPHETAMINE [Suspect]
     Active Substance: METHAMPHETAMINE
     Indication: Product used for unknown indication
     Dosage: UNK
     Route: 042

REACTIONS (20)
  - Hypophagia [Unknown]
  - Lethargy [Unknown]
  - Pulmonary embolism [Unknown]
  - Pneumomediastinum [Unknown]
  - Subcutaneous emphysema [Unknown]
  - Condition aggravated [Unknown]
  - Oedematous pancreatitis [Unknown]
  - Seizure [Unknown]
  - Renal infarct [Unknown]
  - Tracheal injury [Unknown]
  - Pneumoperitoneum [Unknown]
  - Drug withdrawal syndrome [Unknown]
  - Pneumothorax [Unknown]
  - Acute kidney injury [Unknown]
  - Depressed level of consciousness [Unknown]
  - Hypotension [Unknown]
  - Hypokalaemia [Unknown]
  - Substance abuse [Unknown]
  - Endotracheal intubation [Unknown]
  - Incorrect route of product administration [Unknown]
